FAERS Safety Report 25924014 (Version 1)
Quarter: 2025Q4

REPORT INFORMATION
  Report Type: Spontaneous
  Country: US (occurrence: None)
  Receive Date: 20251011
  Receipt Date: 20251011
  Transmission Date: 20260118
  Serious: Yes (Hospitalization, Disabling)
  Sender: FDA-CTU
  Company Number: None

PATIENT
  Age: 46 Year
  Sex: Female
  Weight: 76.5 kg

DRUGS (7)
  1. KIRKLAND SIGNATURE LAXACLEAR ORIGINAL PRESCRIPTION STRENGTH [Suspect]
     Active Substance: POLYETHYLENE GLYCOL 3350
     Indication: Constipation
     Dosage: FREQUENCY : AT BEDTIME;?
     Route: 048
     Dates: start: 20241201, end: 20250916
  2. PANTOPRAZOLE [Concomitant]
     Active Substance: PANTOPRAZOLE
  3. ACETAMINOPHEN [Concomitant]
     Active Substance: ACETAMINOPHEN
  4. PREDNISONE [Concomitant]
     Active Substance: PREDNISONE
  5. DOCUSATE SODIUM [Concomitant]
     Active Substance: DOCUSATE SODIUM
  6. SUCRALFATE [Concomitant]
     Active Substance: SUCRALFATE
  7. SENNA [Concomitant]
     Active Substance: SENNOSIDES

REACTIONS (14)
  - Chest pain [None]
  - Dyspepsia [None]
  - Skin burning sensation [None]
  - Skin burning sensation [None]
  - Gastrooesophageal reflux disease [None]
  - Dehydration [None]
  - Cholelithiasis [None]
  - Ulcer [None]
  - Cholecystitis acute [None]
  - Cholecystitis [None]
  - Chest pain [None]
  - Cholelithiasis [None]
  - Anaphylactic reaction [None]
  - Drug hypersensitivity [None]

NARRATIVE: CASE EVENT DATE: 20250916
